FAERS Safety Report 6748459-9 (Version None)
Quarter: 2010Q2

REPORT INFORMATION
  Report Type: 
  Country: None (occurrence: None)
  Receive Date: 20100527
  Receipt Date: 20100527
  Transmission Date: 20101027
  Serious: No
  Sender: FDA-Public Use
  Company Number: None

PATIENT
  Age: 47 Year
  Sex: Female
  Weight: 50.8029 kg

DRUGS (1)
  1. EPIPEN [Suspect]
     Dosage: 0.3MG ONCE ACCIDENTAL INJECTION THUMB
     Dates: start: 20100512

REACTIONS (3)
  - ACCIDENTAL EXPOSURE [None]
  - MEDICATION ERROR [None]
  - POOR PERIPHERAL CIRCULATION [None]
